FAERS Safety Report 18517277 (Version 1)
Quarter: 2020Q4

REPORT INFORMATION
  Report Type: Spontaneous
  Country: US (occurrence: US)
  Receive Date: 20201118
  Receipt Date: 20201118
  Transmission Date: 20210114
  Serious: Yes (Death, Hospitalization, Other)
  Sender: FDA-Public Use
  Company Number: US-PFIZER INC-2020449617

PATIENT
  Age: 27 Year
  Sex: Female

DRUGS (3)
  1. CARBOPLATIN. [Suspect]
     Active Substance: CARBOPLATIN
     Dosage: UNK, CYCLIC (2 CYCLES)
  2. DENOSUMAB [Suspect]
     Active Substance: DENOSUMAB
     Dosage: UNK, CYCLIC (2 CYCLES)
  3. PACLITAXEL. [Suspect]
     Active Substance: PACLITAXEL
     Dosage: UNK, CYCLIC (2 CYCLES)

REACTIONS (5)
  - Pleural effusion [Fatal]
  - Cerebellar infarction [Fatal]
  - Respiratory disorder [Fatal]
  - Pneumonia [Fatal]
  - Respiratory failure [Fatal]
